FAERS Safety Report 7894000-7 (Version None)
Quarter: 2011Q4

REPORT INFORMATION
  Report Type: 
  Country: None (occurrence: None)
  Receive Date: 20111104
  Receipt Date: 20111102
  Transmission Date: 20120403
  Serious: No
  Sender: FDA-Public Use
  Company Number: US-PFIZER INC-2011268652

PATIENT
  Sex: Female
  Weight: 69.841 kg

DRUGS (1)
  1. IBUPROFEN (ADVIL) [Suspect]
     Dosage: 200 MG, 2X/DAY
     Route: 048

REACTIONS (2)
  - FEAR [None]
  - THROAT IRRITATION [None]
